FAERS Safety Report 21561940 (Version 1)
Quarter: 2022Q4

REPORT INFORMATION
  Report Type: Spontaneous
  Country: ID (occurrence: ID)
  Receive Date: 20221107
  Receipt Date: 20221107
  Transmission Date: 20230112
  Serious: Yes (Other)
  Sender: FDA-Public Use
  Company Number: ID-PFIZER INC-PV202200096803

PATIENT
  Age: 49 Year
  Sex: Female

DRUGS (1)
  1. DOCETAXEL [Suspect]
     Active Substance: DOCETAXEL
     Dosage: UNK, CYCLIC

REACTIONS (6)
  - Haemorrhage [Unknown]
  - Localised oedema [Unknown]
  - Oedema peripheral [Unknown]
  - Diarrhoea [Unknown]
  - Ulcer [Unknown]
  - Secretion discharge [Unknown]
